FAERS Safety Report 14559960 (Version 1)
Quarter: 2018Q1

REPORT INFORMATION
  Report Type: Spontaneous
  Country: US (occurrence: US)
  Receive Date: 20180221
  Receipt Date: 20180221
  Transmission Date: 20180509
  Serious: No
  Sender: FDA-Public Use
  Company Number: US-TEVA-2018-US-860593

PATIENT
  Sex: Female

DRUGS (2)
  1. CLONAZEPAM. [Suspect]
     Active Substance: CLONAZEPAM
     Indication: POST-TRAUMATIC STRESS DISORDER
  2. CLONAZEPAM. [Suspect]
     Active Substance: CLONAZEPAM
     Indication: MYALGIA

REACTIONS (6)
  - Feeling abnormal [Unknown]
  - Palpitations [Unknown]
  - Gastrointestinal disorder [Unknown]
  - Withdrawal syndrome [Unknown]
  - Heart rate increased [Unknown]
  - General physical health deterioration [Unknown]
